FAERS Safety Report 25354339 (Version 1)
Quarter: 2025Q2

REPORT INFORMATION
  Report Type: Report from Study
  Country: CN (occurrence: CN)
  Receive Date: 20250523
  Receipt Date: 20250523
  Transmission Date: 20250716
  Serious: Yes (Hospitalization)
  Sender: BEIGENE
  Company Number: CN-JIANGSUAOSAIKANG-2025ASK002607

PATIENT
  Age: 55 Year
  Weight: 52 kg

DRUGS (7)
  1. TISLELIZUMAB [Suspect]
     Active Substance: TISLELIZUMAB
     Indication: Adenocarcinoma
     Dosage: 200 MILLIGRAM, Q3WK
  2. INVESTIGATIONAL PRODUCT [Suspect]
     Active Substance: INVESTIGATIONAL PRODUCT
     Indication: Adenocarcinoma
     Dosage: 6 MILLIGRAM/KILOGRAM, Q3WK
  3. OXALIPLATIN [Suspect]
     Active Substance: OXALIPLATIN
     Indication: Adenocarcinoma
     Dosage: 130 MG/M2, EVERY 3 WEEKS
  4. OXALIPLATIN [Suspect]
     Active Substance: OXALIPLATIN
     Dosage: 100 MG/M2, EVERY 3 WEEKS
  5. CAPECITABINE [Suspect]
     Active Substance: CAPECITABINE
     Indication: Adenocarcinoma
     Dosage: 1000 MG/M2, BID/D1-D14 PER CYCLE
  6. CAPECITABINE [Suspect]
     Active Substance: CAPECITABINE
     Dosage: 1000 MG/M2, BID/D1-D14 PER CYCLE
  7. CAPECITABINE [Suspect]
     Active Substance: CAPECITABINE
     Dosage: 750 MG/M2, BID/D1-D14 PER CYCLE

REACTIONS (1)
  - Latent autoimmune diabetes in adults [Recovering/Resolving]
